FAERS Safety Report 6207525-7 (Version None)
Quarter: 2009Q2

REPORT INFORMATION
  Report Type: 
  Country: None (occurrence: None)
  Receive Date: 20090528
  Receipt Date: 20090519
  Transmission Date: 20091009
  Serious: Yes (Other)
  Sender: FDA-Public Use
  Company Number: US-JNJCH-2009013965

PATIENT
  Age: 24 Year
  Sex: Male
  Weight: 86.2 kg

DRUGS (1)
  1. LUBRIDERM DAILY MOISTURE FRAGRANCE FREE [Suspect]
     Indication: OFF LABEL USE
     Dosage: TEXT:UNSPECIFIED APPLYING FOR ABOUT 1 HOUR
     Route: 061
     Dates: start: 20090519, end: 20090519

REACTIONS (3)
  - EJACULATION FAILURE [None]
  - ERECTION INCREASED [None]
  - PENIS DISORDER [None]
